FAERS Safety Report 9353639 (Version 1)
Quarter: 2013Q2

REPORT INFORMATION
  Report Type: Spontaneous
  Country: US (occurrence: None)
  Receive Date: 20130617
  Receipt Date: 20130617
  Transmission Date: 20140414
  Serious: Yes (Other)
  Sender: FDA-Public Use
  Company Number: None

PATIENT
  Age: 61 Year
  Sex: Female
  Weight: 69.4 kg

DRUGS (3)
  1. ALPRAZOLAM [Suspect]
     Indication: POST-TRAUMATIC STRESS DISORDER
     Dosage: 0.5 MG BID PO
     Route: 048
     Dates: start: 20110401, end: 20130606
  2. ALPRAZOLAM [Suspect]
     Indication: ANXIETY
     Dosage: 0.5 MG BID PO
     Route: 048
     Dates: start: 20110401, end: 20130606
  3. ALPRAZOLAM [Suspect]
     Indication: MOOD SWINGS
     Dosage: 0.5 MG BID PO
     Route: 048
     Dates: start: 20110401, end: 20130606

REACTIONS (2)
  - Crying [None]
  - Drug ineffective [None]
